FAERS Safety Report 8239995-7 (Version None)
Quarter: 2012Q1

REPORT INFORMATION
  Report Type: 
  Country: None (occurrence: None)
  Receive Date: 20120309
  Receipt Date: 20100809
  Transmission Date: 20120608
  Serious: Yes (Other)
  Sender: FDA-Public Use
  Company Number: PHHY2010US47461

PATIENT
  Age: 50 Year
  Sex: Female

DRUGS (9)
  1. CELEBREX [Concomitant]
  2. SYNTHROID [Concomitant]
  3. EXTAVIA [Suspect]
     Indication: MULTIPLE SCLEROSIS
     Dosage: SUBCUTANEOUS, SUBCUTANEOUS
     Route: 058
     Dates: end: 20100601
  4. EXTAVIA [Suspect]
     Indication: MULTIPLE SCLEROSIS
     Dosage: SUBCUTANEOUS, SUBCUTANEOUS
     Route: 058
     Dates: start: 20100101, end: 20100401
  5. CLONIDINE [Concomitant]
  6. CLARINEX (LORATADINE, PSEUDOEPHEDRINE SULFATE) [Concomitant]
  7. NEURONTIN [Concomitant]
  8. TRAMADOL HCL [Concomitant]
  9. NEXIUM [Concomitant]

REACTIONS (5)
  - MALAISE [None]
  - FEELING ABNORMAL [None]
  - LIVER FUNCTION TEST ABNORMAL [None]
  - INFLUENZA LIKE ILLNESS [None]
  - DEPRESSION [None]
